FAERS Safety Report 15579576 (Version 1)
Quarter: 2018Q4

REPORT INFORMATION
  Report Type: Spontaneous
  Country: US (occurrence: US)
  Receive Date: 20181030
  Receipt Date: 20181030
  Transmission Date: 20190205
  Serious: Yes (Hospitalization)
  Sender: FDA-Public Use
  Company Number: None

PATIENT
  Age: 58 Year
  Sex: Female

DRUGS (19)
  1. SOOLANTRA [Concomitant]
     Active Substance: IVERMECTIN
  2. OMEPRAZOLE. [Concomitant]
     Active Substance: OMEPRAZOLE
  3. LORAZEPAM. [Concomitant]
     Active Substance: LORAZEPAM
  4. FENTANYL. [Concomitant]
     Active Substance: FENTANYL
  5. LONSURF [Suspect]
     Active Substance: TIPIRACIL HYDROCHLORIDE\TRIFLURIDINE
     Indication: COLON CANCER
     Route: 048
     Dates: start: 20180809
  6. DOXYCYCLINE. [Concomitant]
     Active Substance: DOXYCYCLINE
  7. DIBUCAINE. [Concomitant]
     Active Substance: DIBUCAINE
  8. PROCTOSOL [Concomitant]
  9. CLINDAMYCIN. [Concomitant]
     Active Substance: CLINDAMYCIN
  10. PROCHLORPERAZINE. [Concomitant]
     Active Substance: PROCHLORPERAZINE
  11. LOPERAMIDE [Concomitant]
     Active Substance: LOPERAMIDE
  12. LOMOTIL [Concomitant]
     Active Substance: ATROPINE SULFATE\DIPHENOXYLATE HYDROCHLORIDE
  13. DEAAMETHASONE [Concomitant]
  14. RETIN [Concomitant]
  15. GABAPENTIN. [Concomitant]
     Active Substance: GABAPENTIN
  16. DIPHENHYDRAMINE. [Concomitant]
     Active Substance: DIPHENHYDRAMINE
  17. CLOBETASOL [Concomitant]
     Active Substance: CLOBETASOL
  18. OXYCODONE [Concomitant]
     Active Substance: OXYCODONE
  19. ONDANSETRON [Concomitant]
     Active Substance: ONDANSETRON

REACTIONS (1)
  - Neoplasm malignant [None]

NARRATIVE: CASE EVENT DATE: 20181026
